FAERS Safety Report 7733121-6 (Version None)
Quarter: 2011Q3

REPORT INFORMATION
  Report Type: 
  Country: None (occurrence: None)
  Receive Date: 20110817
  Receipt Date: 20101227
  Transmission Date: 20111222
  Serious: No
  Sender: FDA-Public Use
  Company Number: 20084595

PATIENT
  Sex: Female

DRUGS (3)
  1. LIORESAL [Suspect]
     Indication: MUSCLE SPASTICITY
     Dosage: DAILY, INTRATHECAL
     Route: 037
  2. MORPHINE [Concomitant]
  3. BUPIVICAINE [Concomitant]

REACTIONS (8)
  - DIZZINESS [None]
  - PAIN [None]
  - FALL [None]
  - WITHDRAWAL SYNDROME [None]
  - NAUSEA [None]
  - CHILLS [None]
  - HYPERHIDROSIS [None]
  - VOMITING [None]
